FAERS Safety Report 4996605-X (Version None)
Quarter: 2006Q2

REPORT INFORMATION
  Report Type: 
  Country: None (occurrence: None)
  Receive Date: 20060505
  Receipt Date: 20060424
  Transmission Date: 20061013
  Serious: Yes (Hospitalization)
  Sender: FDA-Public Use
  Company Number: 2006BI006000

PATIENT
  Age: 40 Year
  Sex: Female
  Weight: 81.6475 kg

DRUGS (10)
  1. AVONEX [Suspect]
     Indication: MULTIPLE SCLEROSIS
     Dosage: 30 UG; QW; IM
     Route: 030
     Dates: start: 19990101
  2. DILANTIN [Concomitant]
  3. TEGRETOL [Concomitant]
  4. AMBIEN [Concomitant]
  5. ALBUTEROL [Concomitant]
  6. PREDNISONE TAB [Concomitant]
  7. ALBUTEROL [Concomitant]
  8. NEXIUM [Concomitant]
  9. LASIX [Concomitant]
  10. POTASSIUM [Concomitant]

REACTIONS (1)
  - LOWER LIMB FRACTURE [None]
